FAERS Safety Report 5209204-1 (Version None)
Quarter: 2007Q1

REPORT INFORMATION
  Report Type: 
  Country: None (occurrence: None)
  Receive Date: 20070116
  Receipt Date: 20070109
  Transmission Date: 20070707
  Serious: Yes (Hospitalization)
  Sender: FDA-Public Use
  Company Number: BE-ROCHE-477388

PATIENT
  Age: 63 Year
  Sex: Female

DRUGS (4)
  1. MYCOPHENOLATE MOFETIL [Suspect]
     Route: 065
     Dates: start: 20050715
  2. BLINDED TACROLIMUS [Suspect]
     Route: 048
     Dates: start: 20050715
  3. CORTICOSTEROIDS [Suspect]
     Route: 065
     Dates: start: 20050715
  4. AMLOR [Concomitant]

REACTIONS (1)
  - BLADDER CANCER [None]
